FAERS Safety Report 10067732 (Version 1)
Quarter: 2014Q1

REPORT INFORMATION
  Report Type: Spontaneous
  Country: US (occurrence: None)
  Receive Date: 20140311
  Receipt Date: 20140311
  Transmission Date: 20141002
  Serious: Yes (Hospitalization, Other)
  Sender: FDA-Public Use
  Company Number: OPCR20130175

PATIENT
  Age: 26 Year
  Sex: Male

DRUGS (1)
  1. OPANA ER [Suspect]
     Indication: DRUG ABUSE
     Route: 042
     Dates: start: 201303, end: 201304

REACTIONS (14)
  - Thrombotic thrombocytopenic purpura [None]
  - Hepatitis C virus test positive [None]
  - Drug abuse [None]
  - Renal failure acute [None]
  - Road traffic accident [None]
  - Refusal of treatment by patient [None]
  - Blood pressure systolic increased [None]
  - Haemodialysis [None]
  - Thrombotic microangiopathy [None]
  - Renal tubular disorder [None]
  - Microangiopathic haemolytic anaemia [None]
  - Drug dependence [None]
  - Incorrect route of drug administration [None]
  - Product formulation issue [None]
